FAERS Safety Report 12516776 (Version 2)
Quarter: 2016Q3

REPORT INFORMATION
  Report Type: Spontaneous
  Country: FR (occurrence: FR)
  Receive Date: 20160630
  Receipt Date: 20160718
  Transmission Date: 20161109
  Serious: Yes (Other)
  Sender: FDA-Public Use
  Company Number: FR-APOTEX-2016AP009568

PATIENT
  Age: 70 Year
  Sex: Male

DRUGS (3)
  1. PAXIL [Suspect]
     Active Substance: PAROXETINE HYDROCHLORIDE
     Indication: ANTIDEPRESSANT THERAPY
     Route: 065
  2. BACLOFEN. [Interacting]
     Active Substance: BACLOFEN
     Indication: ALCOHOL REHABILITATION
     Dosage: 180 MG, UNK
     Route: 048
  3. ZOPICLONE [Concomitant]
     Active Substance: ZOPICLONE
     Indication: ANXIOLYTIC THERAPY
     Route: 065

REACTIONS (2)
  - Drug interaction [Unknown]
  - Sleep apnoea syndrome [Recovered/Resolved]
